FAERS Safety Report 9934836 (Version 1)
Quarter: 2014Q1

REPORT INFORMATION
  Report Type: Spontaneous
  Country: US (occurrence: US)
  Receive Date: 20140228
  Receipt Date: 20140228
  Transmission Date: 20141002
  Serious: No
  Sender: FDA-Public Use
  Company Number: US-ASTRAZENECA-2013SE67349

PATIENT
  Age: 68 Year
  Sex: Female
  Weight: 71.2 kg

DRUGS (11)
  1. CLIDINIUM CHLORDIAZEPOXIDE [Concomitant]
     Indication: CHEST PAIN
     Dosage: 2.5 TO 5 CAPSULE AT NIGHT
  2. METFORMIN HCL [Concomitant]
     Indication: BLOOD GLUCOSE ABNORMAL
  3. LIPITOR [Concomitant]
     Indication: BLOOD CHOLESTEROL INCREASED
  4. LIPITOR [Concomitant]
     Indication: BLOOD CHOLESTEROL INCREASED
     Dates: start: 201306
  5. LANSOPRAZOLE [Concomitant]
     Indication: GASTROOESOPHAGEAL REFLUX DISEASE
  6. LANSOPRAZOLE [Concomitant]
     Indication: GASTROOESOPHAGEAL REFLUX DISEASE
  7. METOPROLOL SUCCINATE [Suspect]
     Indication: HYPERTENSION
     Route: 048
     Dates: start: 2010
  8. METOPROLOL SUCCINATE [Suspect]
     Indication: HYPERTENSION
     Route: 048
  9. DIOVAN [Concomitant]
     Indication: HYPERTENSION
  10. HYDRALAZINE [Concomitant]
     Indication: HYPERTENSION
     Dates: start: 20130620
  11. HYDRALAZINE [Concomitant]
     Indication: HYPERTENSION
     Dates: start: 20130724

REACTIONS (12)
  - Dysphagia [Unknown]
  - Adverse event [Unknown]
  - Hypersensitivity [Unknown]
  - Blood pressure abnormal [Unknown]
  - Faecal incontinence [Unknown]
  - Discomfort [Not Recovered/Not Resolved]
  - Rash [Unknown]
  - Anxiety [Unknown]
  - Dizziness [Not Recovered/Not Resolved]
  - Nausea [Not Recovered/Not Resolved]
  - Chest discomfort [Not Recovered/Not Resolved]
  - Drug ineffective [Unknown]
